FAERS Safety Report 14236035 (Version 2)
Quarter: 2018Q1

REPORT INFORMATION
  Report Type: Spontaneous
  Country: FR (occurrence: FR)
  Receive Date: 20171129
  Receipt Date: 20180202
  Transmission Date: 20180508
  Serious: Yes (Other)
  Sender: FDA-Public Use
  Company Number: FR-MERCK KGAA-2036245

PATIENT
  Age: 67 Year
  Sex: Female
  Weight: 76 kg

DRUGS (3)
  1. IRBESARTAN/HYDROCHLOROTHIAZIDE TEVA(KARVEA HCT) [Concomitant]
     Route: 048
  2. ROSUVASTATINE [Concomitant]
     Active Substance: ROSUVASTATIN
  3. NOVOTHYROX [Suspect]
     Active Substance: LEVOTHYROXINE SODIUM
     Indication: THYROIDECTOMY
     Route: 048
     Dates: start: 201704, end: 20171003

REACTIONS (6)
  - Pudendal canal syndrome [Recovering/Resolving]
  - Insomnia [Recovering/Resolving]
  - Fatigue [Recovering/Resolving]
  - Blood thyroid stimulating hormone [Recovering/Resolving]
  - Depression [Recovering/Resolving]
  - Weight decreased [Recovering/Resolving]

NARRATIVE: CASE EVENT DATE: 20170520
